FAERS Safety Report 7652590-3 (Version None)
Quarter: 2011Q3

REPORT INFORMATION
  Report Type: 
  Country: None (occurrence: None)
  Receive Date: 20110803
  Receipt Date: 20110729
  Transmission Date: 20111222
  Serious: Yes (Life-Threatening, Other)
  Sender: FDA-Public Use
  Company Number: US-SANOFI-AVENTIS-2011SA048977

PATIENT
  Age: 82 Year
  Sex: Female

DRUGS (5)
  1. METOPROLOL TARTRATE [Concomitant]
  2. MULTAQ [Suspect]
     Indication: ATRIAL FIBRILLATION
     Route: 048
     Dates: start: 20090101, end: 20110505
  3. ISOSORBIDE DINITRATE [Concomitant]
  4. ASPIRIN [Concomitant]
  5. PRAVASTATIN [Concomitant]

REACTIONS (2)
  - VENTRICULAR TACHYCARDIA [None]
  - ATRIAL FIBRILLATION [None]
